FAERS Safety Report 7692639-5 (Version None)
Quarter: 2011Q3

REPORT INFORMATION
  Report Type: 
  Country: None (occurrence: None)
  Receive Date: 20110819
  Receipt Date: 20110808
  Transmission Date: 20111222
  Serious: Yes (Death, Other)
  Sender: FDA-Public Use
  Company Number: PHHY2011US49818

PATIENT

DRUGS (1)
  1. AREDIA [Suspect]
     Dosage: UNK

REACTIONS (3)
  - RENAL FAILURE [None]
  - FAILURE TO THRIVE [None]
  - OSTEONECROSIS OF JAW [None]
